FAERS Safety Report 12164507 (Version 1)
Quarter: 2016Q1

REPORT INFORMATION
  Report Type: Spontaneous
  Country: US (occurrence: US)
  Receive Date: 20160309
  Receipt Date: 20160309
  Transmission Date: 20160526
  Serious: No
  Sender: FDA-Public Use
  Company Number: US-ROCHE-1656726

PATIENT
  Sex: Male

DRUGS (2)
  1. XOLAIR [Suspect]
     Active Substance: OMALIZUMAB
     Indication: ASTHMA
     Dosage: SHOT IN BOTH ARMS EVERY 2 WEEKS
     Route: 058
  2. BIPAP [Concomitant]
     Active Substance: DEVICE
     Dosage: BIPAP MACHINE
     Route: 065

REACTIONS (3)
  - Wheezing [Recovered/Resolved]
  - Asthma [Unknown]
  - Poor quality sleep [Not Recovered/Not Resolved]
